FAERS Safety Report 8952661 (Version 3)
Quarter: 2013Q1

REPORT INFORMATION
  Report Type: Spontaneous
  Country: AU (occurrence: AU)
  Receive Date: 20121205
  Receipt Date: 20130219
  Transmission Date: 20140127
  Serious: Yes (Hospitalization)
  Sender: FDA-Public Use
  Company Number: AU-009507513-1212AUS000013

PATIENT
  Age: 71 Year
  Sex: Female

DRUGS (4)
  1. VICTRELIS 200 MG [Suspect]
     Dosage: 2250 MG,UNK
     Route: 048
     Dates: start: 20120328, end: 20121123
  2. RIBAVIRIN [Suspect]
     Indication: ANAEMIA
     Dosage: 400 MG, UNK
     Route: 048
     Dates: start: 20120229, end: 20120917
  3. RIBAVIRIN [Suspect]
     Indication: HAEMOGLOBIN DECREASED
  4. PEGINTERFERON ALFA-2A [Suspect]
     Indication: HOSPITALISATION
     Dosage: 135 MICROGRAM, QW
     Route: 058
     Dates: start: 20120229, end: 20121123

REACTIONS (1)
  - Cerebrovascular accident [Unknown]
